FAERS Safety Report 8393100-5 (Version None)
Quarter: 2012Q2

REPORT INFORMATION
  Report Type: 
  Country: None (occurrence: None)
  Receive Date: 20120529
  Receipt Date: 20120416
  Transmission Date: 20120825
  Serious: No
  Sender: FDA-Public Use
  Company Number: US-ABBOTT-12P-163-0926111-00

PATIENT
  Sex: Female
  Weight: 56.75 kg

DRUGS (3)
  1. ANDROGEL [Suspect]
     Indication: LIBIDO DECREASED
     Dosage: 1/4 OF ONE PUMP ACTUATION
     Route: 061
     Dates: start: 20120317, end: 20120327
  2. ANDROGEL [Suspect]
     Dosage: 1/4 OF ONE PUMP ACTUATION
     Route: 061
     Dates: start: 20120402
  3. VAGIFEM [Concomitant]
     Indication: VULVOVAGINAL DRYNESS
     Dosage: VAGINAL SUPPOSITORY

REACTIONS (3)
  - ABDOMINAL PAIN LOWER [None]
  - OFF LABEL USE [None]
  - BACK PAIN [None]
